FAERS Safety Report 6142693-7 (Version None)
Quarter: 2009Q2

REPORT INFORMATION
  Report Type: 
  Country: None (occurrence: None)
  Receive Date: 20090403
  Receipt Date: 20090304
  Transmission Date: 20091009
  Serious: No
  Sender: FDA-Public Use
  Company Number: US-BAYER-200910018BCC

PATIENT
  Age: 62 Year
  Sex: Female
  Weight: 70 kg

DRUGS (3)
  1. ALEVE [Suspect]
     Indication: PLANTAR FASCIITIS
     Dosage: TOTAL DAILY DOSE: 440 MG  UNIT DOSE: 220 MG
     Route: 048
     Dates: start: 20081224, end: 20081227
  2. ASPIRIN [Concomitant]
     Dosage: WITH HEART ADVANTAGE
  3. CALCIUM AND VITAMIN D [Concomitant]

REACTIONS (4)
  - DRY MOUTH [None]
  - DRY SKIN [None]
  - ERYTHEMA [None]
  - SWELLING FACE [None]
